FAERS Safety Report 9338604 (Version 4)
Quarter: 2013Q3

REPORT INFORMATION
  Report Type: Report from Study
  Country: CA (occurrence: CA)
  Receive Date: 20130610
  Receipt Date: 20130731
  Transmission Date: 20140515
  Serious: Yes (Death, Other)
  Sender: FDA-Public Use
  Company Number: PHHY2013CA058096

PATIENT
  Sex: Male

DRUGS (1)
  1. ZOMETA [Suspect]
     Indication: PLASMA CELL MYELOMA
     Dosage: 4 MG, EVERY 3-4 WEEKS
     Route: 042
     Dates: start: 20121111, end: 20130422

REACTIONS (3)
  - Clostridium difficile infection [Fatal]
  - Plasma cell myeloma recurrent [Fatal]
  - Pneumonia [Unknown]
